FAERS Safety Report 6229884-1 (Version None)
Quarter: 2009Q2

REPORT INFORMATION
  Report Type: 
  Country: None (occurrence: None)
  Receive Date: 20090615
  Receipt Date: 20090608
  Transmission Date: 20091009
  Serious: Yes (Death)
  Sender: FDA-Public Use
  Company Number: US-GILEAD-2009-0022482

PATIENT
  Sex: Female
  Weight: 115.77 kg

DRUGS (5)
  1. LETAIRIS [Suspect]
     Indication: PULMONARY ARTERIAL HYPERTENSION
     Route: 048
     Dates: start: 20071013
  2. REVATIO [Concomitant]
  3. LASIX [Concomitant]
  4. ZOCOR [Concomitant]
  5. ZYRTEC [Concomitant]

REACTIONS (1)
  - DEATH [None]
